FAERS Safety Report 24869412 (Version 1)
Quarter: 2025Q1

REPORT INFORMATION
  Report Type: Spontaneous
  Country: US (occurrence: None)
  Receive Date: 20250121
  Receipt Date: 20250121
  Transmission Date: 20250409
  Serious: Yes (Hospitalization)
  Sender: FDA-CTU
  Company Number: None

PATIENT
  Age: 75 Year
  Sex: Female

DRUGS (1)
  1. COSENTYX [Suspect]
     Active Substance: SECUKINUMAB
     Indication: Psoriatic arthropathy
     Dosage: 300MG EVERY 4 WEEKS

REACTIONS (6)
  - Therapy interrupted [None]
  - Rheumatoid arthritis [None]
  - Fall [None]
  - Head injury [None]
  - Vision blurred [None]
  - Dyspnoea exertional [None]
